FAERS Safety Report 7816924-9 (Version None)
Quarter: 2011Q4

REPORT INFORMATION
  Report Type: 
  Country: None (occurrence: None)
  Receive Date: 20111017
  Receipt Date: 20111003
  Transmission Date: 20120403
  Serious: Yes (Other)
  Sender: FDA-Public Use
  Company Number: JP-ELI_LILLY_AND_COMPANY-JP201109006891

PATIENT
  Age: 71 Year
  Sex: Female

DRUGS (1)
  1. FORTEO [Suspect]
     Dosage: UNK
     Route: 058
     Dates: start: 20110501

REACTIONS (6)
  - DIABETIC NEUROPATHY [None]
  - LOSS OF CONSCIOUSNESS [None]
  - BONE PAIN [None]
  - MUSCULAR WEAKNESS [None]
  - OEDEMA PERIPHERAL [None]
  - HEADACHE [None]
